FAERS Safety Report 6427758-4 (Version None)
Quarter: 2009Q4

REPORT INFORMATION
  Report Type: 
  Country: None (occurrence: None)
  Receive Date: 20091029
  Receipt Date: 20091013
  Transmission Date: 20100525
  Serious: Yes (Hospitalization, Other)
  Sender: FDA-Public Use
  Company Number: JPI-P-008652

PATIENT
  Age: 65 Year
  Sex: Male

DRUGS (8)
  1. XYREM [Suspect]
     Indication: CATAPLEXY
     Dosage: 9 GM (4.5 GM, 2 IN 1 D), ORAL; 7 GM (3.5 GM, 2 IN 1 D); 9 GM (4.5 GM, 2 IN 1 D), ORAL
     Route: 048
     Dates: end: 20090101
  2. XYREM [Suspect]
     Indication: CATAPLEXY
     Dosage: 9 GM (4.5 GM, 2 IN 1 D), ORAL; 7 GM (3.5 GM, 2 IN 1 D); 9 GM (4.5 GM, 2 IN 1 D), ORAL
     Route: 048
     Dates: start: 20020717
  3. XYREM [Suspect]
     Indication: CATAPLEXY
     Dosage: 9 GM (4.5 GM, 2 IN 1 D), ORAL; 7 GM (3.5 GM, 2 IN 1 D); 9 GM (4.5 GM, 2 IN 1 D), ORAL
     Route: 048
     Dates: start: 20090101
  4. FLUTICASONE [Concomitant]
  5. IPRATROPIUM BROMIDE AND ALBUTEROL SULFATE [Concomitant]
  6. NIFEDIPINE [Concomitant]
  7. MODAFINIL [Concomitant]
  8. VITAMINS [Concomitant]

REACTIONS (3)
  - ANKYLOSING SPONDYLITIS [None]
  - CHRONIC OBSTRUCTIVE PULMONARY DISEASE [None]
  - DISEASE PROGRESSION [None]
